FAERS Safety Report 17771001 (Version 1)
Quarter: 2020Q2

REPORT INFORMATION
  Report Type: Spontaneous
  Country: US (occurrence: US)
  Receive Date: 20200512
  Receipt Date: 20200512
  Transmission Date: 20200714
  Serious: No
  Sender: FDA-Public Use
  Company Number: US-PFIZER INC-2020187613

PATIENT
  Age: 41 Year
  Sex: Male
  Weight: 89.36 kg

DRUGS (1)
  1. PHENYTOIN. [Suspect]
     Active Substance: PHENYTOIN
     Indication: SEIZURE
     Dosage: 500 MG (100MG CAPSULE TWO IN THE MORNING AND THREE AT NIGHT FOR A TOTAL OF 500MG)
     Route: 048

REACTIONS (2)
  - Drug ineffective [Recovered/Resolved]
  - Moaning [Recovered/Resolved]
